FAERS Safety Report 6417035-X (Version None)
Quarter: 2009Q4

REPORT INFORMATION
  Report Type: 
  Country: None (occurrence: None)
  Receive Date: 20091026
  Receipt Date: 20091015
  Transmission Date: 20100525
  Serious: Yes (Other)
  Sender: FDA-Public Use
  Company Number: 09-001667

PATIENT
  Age: 53 Year
  Sex: Female

DRUGS (2)
  1. DOVONEX [Suspect]
     Indication: PSORIASIS
     Dosage: UNK, TOPICAL
     Route: 061
  2. AQUEOUS (EMULSIFYING WAX, PARAFFIN, LIQUID, WHITE SOFT PARAFFIN) CREAM [Concomitant]

REACTIONS (2)
  - DERMATITIS ALLERGIC [None]
  - DERMATITIS CONTACT [None]
